FAERS Safety Report 4641035-3 (Version None)
Quarter: 2005Q2

REPORT INFORMATION
  Report Type: 
  Country: None (occurrence: None)
  Receive Date: 20050421
  Receipt Date: 20050208
  Transmission Date: 20051028
  Serious: No
  Sender: FDA-Public Use
  Company Number: US-BRISTOL-MYERS SQUIBB COMPANY-12853149

PATIENT
  Age: 87 Year
  Sex: Female
  Weight: 45 kg

DRUGS (2)
  1. AMMONIUM LACTATE [Suspect]
     Indication: DRY SKIN
     Dates: start: 20050208
  2. SYNTHROID [Concomitant]

REACTIONS (1)
  - APPLICATION SITE IRRITATION [None]
